FAERS Safety Report 22526615 (Version 1)
Quarter: 2023Q2

REPORT INFORMATION
  Report Type: Spontaneous
  Country: KR (occurrence: KR)
  Receive Date: 20230606
  Receipt Date: 20230606
  Transmission Date: 20230721
  Serious: Yes (Hospitalization)
  Sender: FDA-Public Use
  Company Number: KR-ORGANON-O2305KOR003203

PATIENT
  Age: 85 Year
  Sex: Male
  Weight: 84.1 kg

DRUGS (23)
  1. COZAAR [Suspect]
     Active Substance: LOSARTAN POTASSIUM
     Indication: Essential hypertension
     Dosage: 50 MILLIGRAM, QD
     Route: 048
     Dates: start: 20150304
  2. CEFIXIME [Concomitant]
     Active Substance: CEFIXIME
     Dosage: 100 MILLIGRAM, 0.5 DAY
     Route: 048
     Dates: start: 20191227, end: 20200103
  3. ETHAMBUTOL HYDROCHLORIDE [Concomitant]
     Active Substance: ETHAMBUTOL HYDROCHLORIDE
     Indication: Tuberculosis
     Dosage: 400 MILLIGRAM, 0.5 DAY
     Route: 048
     Dates: start: 20200213
  4. LEVOCETIRIZINE HYDROCHLORIDE [Concomitant]
     Active Substance: LEVOCETIRIZINE HYDROCHLORIDE
     Indication: Tuberculosis
     Dosage: 5 MILLIGRAM, QD
     Route: 048
     Dates: start: 20200213
  5. AMLODIPINE BESYLATE [Concomitant]
     Active Substance: AMLODIPINE BESYLATE
     Indication: Essential hypertension
     Dosage: 5 MILLIGRAM, QD
     Route: 048
     Dates: start: 20120201
  6. FUROSEMIDE [Concomitant]
     Active Substance: FUROSEMIDE
     Indication: Essential hypertension
     Dosage: 20 MILLIGRAM, QD
     Route: 048
     Dates: start: 20191102
  7. SPIRONOLACTONE [Concomitant]
     Active Substance: SPIRONOLACTONE
     Indication: Essential hypertension
     Dosage: 12.5 MILLIGRAM, QD
     Route: 048
     Dates: start: 20191102
  8. DUTASTERIDE [Concomitant]
     Active Substance: DUTASTERIDE
     Indication: Benign prostatic hyperplasia
     Dosage: 0.5 MILLIGRAM, QD
     Route: 048
     Dates: start: 20190708
  9. TAMSULOSIN HYDROCHLORIDE [Concomitant]
     Active Substance: TAMSULOSIN HYDROCHLORIDE
     Indication: Benign prostatic hyperplasia
     Dosage: 0.2 MILLIGRAM, QD
     Route: 048
     Dates: start: 20190708
  10. PITAVASTATIN CALCIUM [Concomitant]
     Active Substance: PITAVASTATIN CALCIUM
     Indication: Prophylaxis
     Dosage: 2 MILLIGRAM, QD
     Dates: start: 20190213
  11. ISONIAZID [Concomitant]
     Active Substance: ISONIAZID
     Indication: Tuberculosis
     Dosage: 100 MILLIGRAM, 0.33 DAYS
     Route: 048
     Dates: start: 20200115
  12. RIFAMPIN [Concomitant]
     Active Substance: RIFAMPIN
     Indication: Tuberculosis
     Dosage: 600 MILLIGRAM, QD
     Route: 048
     Dates: start: 20200115
  13. ETHAMBUTOL HYDROCHLORIDE [Concomitant]
     Active Substance: ETHAMBUTOL HYDROCHLORIDE
     Indication: Tuberculosis
     Dosage: 400 MILLIGRAM, 0.5 DAY
     Route: 048
     Dates: start: 20200115, end: 20200131
  14. PYRAZINAMIDE [Concomitant]
     Active Substance: PYRAZINAMIDE
     Indication: Tuberculosis
     Dosage: 500 MILLIGRAM, 0.33 DAY
     Route: 048
     Dates: start: 20200115, end: 20200228
  15. PYRIDOXINE HYDROCHLORIDE [Concomitant]
     Active Substance: PYRIDOXINE HYDROCHLORIDE
     Indication: Tuberculosis
     Dosage: 50 MILLIGRAM, QD
     Route: 048
     Dates: start: 20200115
  16. ACETAMINOPHEN [Concomitant]
     Active Substance: ACETAMINOPHEN
     Dosage: 650 MILLIGRAM, 0.33 DAY
     Route: 048
     Dates: start: 20191220, end: 20200102
  17. CEFTRIAXONE SODIUM [Concomitant]
     Active Substance: CEFTRIAXONE SODIUM
     Dosage: 2 GRAM, QD, ROUTE REPORTED AS VEIN
     Route: 042
     Dates: start: 20191220, end: 20191225
  18. SODIUM CHLORIDE [Concomitant]
     Active Substance: SODIUM CHLORIDE
     Dosage: 50 MILLILITER, QD, ROUTE REPORTED AS VEIN
     Route: 042
     Dates: start: 20191220, end: 20191226
  19. SODIUM CHLORIDE [Concomitant]
     Active Substance: SODIUM CHLORIDE
     Dosage: 1000 MILLILITER, QD, ROUTE REPORTED AS VEIN
     Route: 042
     Dates: start: 20191220, end: 20191223
  20. PRUCALOPRIDE SUCCINATE [Concomitant]
     Active Substance: PRUCALOPRIDE SUCCINATE
     Dosage: 2 MILLIGRAM, QD, ROUTE REPORTED AS VEIN
     Route: 042
     Dates: start: 20191227, end: 20200103
  21. HYDROMORPHONE HYDROCHLORIDE [Concomitant]
     Active Substance: HYDROMORPHONE HYDROCHLORIDE
     Dosage: 1 MILLILITER, QD, ROUTE REPORTED AS VEIN
     Route: 042
     Dates: start: 20191220, end: 20191221
  22. POTASSIUM CHLORIDE\SODIUM CHLORIDE [Concomitant]
     Active Substance: POTASSIUM CHLORIDE\SODIUM CHLORIDE
     Dosage: 100 MILLILITER, QD, ROUTE REPORTED AS VEIN
     Route: 042
     Dates: start: 20191223, end: 20191224
  23. BETHANECHOL CHLORIDE [Concomitant]
     Active Substance: BETHANECHOL CHLORIDE
     Dosage: 25 MILLIGRAM, 0.33 DAY
     Route: 048
     Dates: start: 20191226, end: 20200110

REACTIONS (3)
  - Penile abscess [Recovered/Resolved]
  - Penile abscess [Recovered/Resolved]
  - Tuberculosis [Unknown]

NARRATIVE: CASE EVENT DATE: 20191207
